FAERS Safety Report 11265543 (Version 1)
Quarter: 2015Q3

REPORT INFORMATION
  Report Type: Spontaneous
  Country: JP (occurrence: JP)
  Receive Date: 20150713
  Receipt Date: 20150713
  Transmission Date: 20151125
  Serious: Yes (Other)
  Sender: FDA-Public Use
  Company Number: GXJP2015JP000912

PATIENT
  Age: 80 Year
  Sex: Male

DRUGS (1)
  1. CEFEPIME [Suspect]
     Active Substance: CEFEPIME HYDROCHLORIDE
     Indication: AORTIC ANEURYSM
     Dosage: 4 G, QD
     Route: 065

REACTIONS (2)
  - Altered state of consciousness [Recovered/Resolved]
  - Creatinine renal clearance decreased [Unknown]
